FAERS Safety Report 6204093-0 (Version None)
Quarter: 2009Q2

REPORT INFORMATION
  Report Type: 
  Country: None (occurrence: None)
  Receive Date: 20090527
  Receipt Date: 20090518
  Transmission Date: 20091009
  Serious: Yes (Hospitalization, Other)
  Sender: FDA-Public Use
  Company Number: US-PFIZER INC-2006022619

PATIENT
  Sex: Male
  Weight: 68.04 kg

DRUGS (15)
  1. TIKOSYN [Suspect]
     Indication: ARRHYTHMIA
     Dosage: 500 UG, 2X/DAY
     Route: 048
     Dates: start: 20060101, end: 20090101
  2. AMIODARONE [Interacting]
     Dates: start: 20090301
  3. WARFARIN [Concomitant]
     Route: 065
  4. SPIRONOLACTONE [Concomitant]
     Route: 065
  5. LORAZEPAM [Concomitant]
     Route: 065
  6. CLONAZEPAM [Concomitant]
     Route: 065
  7. DIGOXIN [Concomitant]
     Route: 065
  8. ENALAPRIL MALEATE [Concomitant]
     Route: 065
  9. LIPITOR [Concomitant]
     Route: 065
  10. COREG [Concomitant]
     Route: 065
  11. ACETYLSALICYLIC ACID [Concomitant]
     Route: 065
  12. TOPROL-XL [Concomitant]
  13. VICODIN [Concomitant]
  14. HYDROCODONE [Concomitant]
  15. DIAZEPAM [Concomitant]

REACTIONS (5)
  - ATRIAL FIBRILLATION [None]
  - CONDITION AGGRAVATED [None]
  - DRUG INTERACTION [None]
  - INFECTION [None]
  - PNEUMONIA [None]
